FAERS Safety Report 26021727 (Version 1)
Quarter: 2025Q4

REPORT INFORMATION
  Report Type: Spontaneous
  Country: US (occurrence: US)
  Receive Date: 20251110
  Receipt Date: 20251110
  Transmission Date: 20260118
  Serious: No
  Sender: ELI LILLY AND COMPANY
  Company Number: US-ELI_LILLY_AND_COMPANY-US202510032207

PATIENT
  Age: 73 Year
  Sex: Female

DRUGS (2)
  1. ZEPBOUND [Suspect]
     Active Substance: TIRZEPATIDE
     Indication: Weight control
     Dosage: 2.5 MG, UNKNOWN
     Route: 058
  2. ZEPBOUND [Suspect]
     Active Substance: TIRZEPATIDE
     Indication: Weight control
     Dosage: 5 MG, UNKNOWN
     Route: 058

REACTIONS (11)
  - Intentional product misuse [Unknown]
  - Pain of skin [Unknown]
  - Pain [Unknown]
  - Restlessness [Unknown]
  - Stress [Unknown]
  - Arthralgia [Unknown]
  - Paraesthesia [Unknown]
  - Nervous system disorder [Unknown]
  - Viral infection [Unknown]
  - Skin warm [Unknown]
  - Pruritus [Unknown]

NARRATIVE: CASE EVENT DATE: 20251026
